FAERS Safety Report 10407720 (Version 1)
Quarter: 2014Q1

REPORT INFORMATION
  Report Type: Spontaneous
  Country: US (occurrence: None)
  Receive Date: 20140131
  Receipt Date: 20140131
  Transmission Date: 20141002
  Serious: Yes (Death, Other)
  Sender: FDA-Public Use
  Company Number: 105014U

PATIENT
  Sex: Female

DRUGS (5)
  1. KEPPRA [Suspect]
     Indication: CONVULSION
     Dates: start: 20110710
  2. KEPPRA [Suspect]
     Indication: CONVULSION
     Dosage: INTRAVENOUS (NOT OTHERWISE SPECIFIED)?
     Route: 042
     Dates: start: 20110729
  3. DILANTIN [Suspect]
     Indication: CONVULSION
     Dosage: 100MG 1X/6HOURS?
     Dates: start: 20110712, end: 201107
  4. VALPROIC ACID [Suspect]
     Indication: CONVULSION
     Dates: start: 20110729, end: 201108
  5. SEROQUEL [Suspect]
     Dates: end: 20110822

REACTIONS (7)
  - Stevens-Johnson syndrome [None]
  - Convulsion [None]
  - Tachycardia [None]
  - Abdominal distension [None]
  - Unresponsive to stimuli [None]
  - Ulcer [None]
  - Vomiting [None]
